FAERS Safety Report 5021101-3 (Version None)
Quarter: 2006Q2

REPORT INFORMATION
  Report Type: 
  Country: None (occurrence: None)
  Receive Date: 20060608
  Receipt Date: 20060530
  Transmission Date: 20061013
  Serious: Yes (Hospitalization, Other)
  Sender: FDA-Public Use
  Company Number: US-JNJFOC-20060403745

PATIENT
  Sex: Female
  Weight: 49.9 kg

DRUGS (6)
  1. REMICADE [Suspect]
     Indication: CROHN'S DISEASE
     Route: 042
  2. BENADRYL [Suspect]
     Indication: PROPHYLAXIS
  3. IMURAN [Concomitant]
     Indication: CROHN'S DISEASE
  4. LEXAPRO [Concomitant]
     Indication: DEPRESSION
  5. BIRTH CONTROL PILLS [Concomitant]
  6. VITAMINS [Concomitant]

REACTIONS (7)
  - DIARRHOEA [None]
  - FATIGUE [None]
  - INFUSION RELATED REACTION [None]
  - LUPUS-LIKE SYNDROME [None]
  - PLEURISY [None]
  - PNEUMONIA [None]
  - SMEAR CERVIX ABNORMAL [None]
